FAERS Safety Report 6814843-8 (Version None)
Quarter: 2010Q3

REPORT INFORMATION
  Report Type: 
  Country: None (occurrence: None)
  Receive Date: 20100702
  Receipt Date: 20100623
  Transmission Date: 20110219
  Serious: Yes (Hospitalization)
  Sender: FDA-Public Use
  Company Number: B0657087A

PATIENT
  Sex: Female

DRUGS (2)
  1. SEREUPIN [Suspect]
     Indication: DEPRESSION
     Dosage: 560MG PER DAY
     Route: 048
     Dates: start: 20100319, end: 20100319
  2. ALPRAZOLAM [Suspect]
     Indication: DEPRESSION
     Dosage: 5MG PER DAY
     Route: 048
     Dates: start: 20100319, end: 20100319

REACTIONS (1)
  - POISONING [None]
